FAERS Safety Report 7945142-9 (Version None)
Quarter: 2011Q4

REPORT INFORMATION
  Report Type: 
  Country: None (occurrence: None)
  Receive Date: 20111129
  Receipt Date: 20111129
  Transmission Date: 20120403
  Serious: Yes (Hospitalization)
  Sender: FDA-Public Use
  Company Number: None

PATIENT
  Age: 37 Year
  Sex: Female
  Weight: 67.585 kg

DRUGS (2)
  1. DEXFERRUM [Suspect]
     Indication: IRON DEFICIENCY ANAEMIA
     Dosage: 25
     Route: 042
  2. SODIUM FERRIC GLUCONATE COMPLEX IN SUCROSE [Concomitant]
     Dosage: 250 MG
     Route: 042

REACTIONS (6)
  - OEDEMA PERIPHERAL [None]
  - NAUSEA [None]
  - RASH PRURITIC [None]
  - PRURITUS [None]
  - BACK PAIN [None]
  - PAIN [None]
